FAERS Safety Report 9349414 (Version 2)
Quarter: 2013Q2

REPORT INFORMATION
  Report Type: Spontaneous
  Country: PL (occurrence: PL)
  Receive Date: 20130614
  Receipt Date: 20130626
  Transmission Date: 20140414
  Serious: Yes (Other)
  Sender: FDA-Public Use
  Company Number: PL-BAXTER-2013BAX021531

PATIENT
  Age: 66 Year
  Sex: Female

DRUGS (4)
  1. ENDOXAN [Suspect]
     Indication: SYSTEMIC LUPUS ERYTHEMATOSUS
     Route: 065
  2. ENDOXAN [Suspect]
     Route: 065
  3. AZATHIOPRINE [Suspect]
     Indication: SYSTEMIC LUPUS ERYTHEMATOSUS
     Route: 065
  4. PREDNISONE [Concomitant]
     Indication: SYSTEMIC LUPUS ERYTHEMATOSUS
     Dosage: 10-25 MG
     Route: 065

REACTIONS (7)
  - Second primary malignancy [Unknown]
  - Acute monocytic leukaemia [Unknown]
  - Renal impairment [Unknown]
  - Proteinuria [Unknown]
  - Hypertension [Unknown]
  - Pancytopenia [Unknown]
  - Myocardial infarction [Unknown]
